FAERS Safety Report 7905970-2 (Version None)
Quarter: 2011Q4

REPORT INFORMATION
  Report Type: 
  Country: None (occurrence: None)
  Receive Date: 20111108
  Receipt Date: 20111025
  Transmission Date: 20120403
  Serious: Yes (Hospitalization, Other)
  Sender: FDA-Public Use
  Company Number: 2011P1009727

PATIENT
  Age: 16 Year
  Sex: Female
  Weight: 63.5036 kg

DRUGS (1)
  1. SOLODYN [Suspect]
     Indication: ACNE
     Dosage: 65 MG;QD;PO
     Route: 048
     Dates: start: 20110801, end: 20110801

REACTIONS (3)
  - LUPUS-LIKE SYNDROME [None]
  - DRUG HYPERSENSITIVITY [None]
  - HEPATIC FUNCTION ABNORMAL [None]
